FAERS Safety Report 4638119-2 (Version None)
Quarter: 2005Q2

REPORT INFORMATION
  Report Type: 
  Country: None (occurrence: None)
  Receive Date: 20050418
  Receipt Date: 20050407
  Transmission Date: 20051028
  Serious: Yes (Hospitalization)
  Sender: FDA-Public Use
  Company Number: PHRM2005FR01234

PATIENT
  Age: 70 Year
  Sex: Female

DRUGS (5)
  1. XANAX [Concomitant]
     Dosage: 0.25 MG, TID
     Route: 048
  2. DAFALGAN [Concomitant]
     Route: 048
  3. LIORESAL [Suspect]
     Dosage: 10 MG, TID
     Route: 048
     Dates: start: 20050114, end: 20050124
  4. ZALDIAR [Suspect]
     Dosage: 2 DF, TID
     Route: 048
     Dates: end: 20050123
  5. ANAFRANIL CAP [Concomitant]
     Dosage: 25 MG, BID
     Route: 048

REACTIONS (6)
  - ABASIA [None]
  - ALANINE AMINOTRANSFERASE INCREASED [None]
  - ASPARTATE AMINOTRANSFERASE INCREASED [None]
  - CEREBRAL ATROPHY [None]
  - CONFUSIONAL STATE [None]
  - ESCHERICHIA URINARY TRACT INFECTION [None]
